FAERS Safety Report 10953403 (Version 2)
Quarter: 2015Q1

REPORT INFORMATION
  Report Type: Other
  Country: FR (occurrence: FR)
  Receive Date: 20150325
  Receipt Date: 20150330
  Transmission Date: 20150721
  Serious: Yes (Death, Life-Threatening, Hospitalization, Other)
  Sender: FDA-Public Use
  Company Number: FR-MYLANLABS-2015M1009218

PATIENT

DRUGS (11)
  1. METHOTREXATE SODIUM. [Suspect]
     Active Substance: METHOTREXATE SODIUM
     Indication: CHEMOTHERAPY
     Dosage: 15 MG, ONCE
     Route: 037
     Dates: start: 20150120, end: 20150120
  2. ARACYTINE [Suspect]
     Active Substance: CYTARABINE
     Indication: CHEMOTHERAPY
     Dosage: 40 MG, ONCE
     Route: 037
     Dates: start: 20150120, end: 20150120
  3. SERESTA [Concomitant]
     Active Substance: OXAZEPAM
     Indication: PRODUCT USED FOR UNKNOWN INDICATION
     Dosage: 1 DF, AM
  4. MACROGOL [Concomitant]
     Active Substance: POLYETHYLENE GLYCOLS
     Indication: PRODUCT USED FOR UNKNOWN INDICATION
     Dosage: 2 DF, QD
  5. HYPNOVEL                           /00634101/ [Concomitant]
     Active Substance: MIDAZOLAM\MIDAZOLAM HYDROCHLORIDE
     Indication: PRODUCT USED FOR UNKNOWN INDICATION
  6. MIANSERIN [Concomitant]
     Active Substance: MIANSERIN
     Indication: PRODUCT USED FOR UNKNOWN INDICATION
     Dosage: 1 DF, QD
  7. VALIUM [Concomitant]
     Active Substance: DIAZEPAM
     Indication: PRODUCT USED FOR UNKNOWN INDICATION
  8. RAMIPRIL. [Concomitant]
     Active Substance: RAMIPRIL
     Indication: PRODUCT USED FOR UNKNOWN INDICATION
     Dosage: 1 DF, QD
  9. ALLOPURINOL. [Concomitant]
     Active Substance: ALLOPURINOL
     Indication: PRODUCT USED FOR UNKNOWN INDICATION
     Dosage: 1 DF, QD
  10. ETOPOSIDE MYLAN 20 MG/ML [Suspect]
     Active Substance: ETOPOSIDE
     Indication: CHEMOTHERAPY
     Dosage: UNK, ONCE
     Route: 041
     Dates: start: 20150119, end: 20150119
  11. PIPERACILLIN, TAZOBACTAM [Suspect]
     Active Substance: PIPERACILLIN SODIUM\TAZOBACTAM SODIUM
     Indication: PRODUCT USED FOR UNKNOWN INDICATION
     Dosage: UNK
     Route: 042
     Dates: start: 20150117

REACTIONS (14)
  - Cerebrovascular accident [Fatal]
  - Systemic candida [Unknown]
  - Cardio-respiratory arrest [Unknown]
  - Cerebral infarction [Unknown]
  - Embolism [Unknown]
  - Septic shock [Fatal]
  - Myoclonus [Recovering/Resolving]
  - Altered state of consciousness [Unknown]
  - Pneumonia [Fatal]
  - Endocarditis [Unknown]
  - Coma [Recovering/Resolving]
  - Acute respiratory distress syndrome [Unknown]
  - Bone marrow failure [Unknown]
  - Cerebral ischaemia [Unknown]

NARRATIVE: CASE EVENT DATE: 20150121
